FAERS Safety Report 6286797-7 (Version None)
Quarter: 2009Q3

REPORT INFORMATION
  Report Type: 
  Country: None (occurrence: None)
  Receive Date: 20090728
  Receipt Date: 20090720
  Transmission Date: 20100115
  Serious: Yes (Other)
  Sender: FDA-Public Use
  Company Number: US-AVENTIS-200916425US

PATIENT
  Age: 65 Year
  Sex: Female

DRUGS (3)
  1. LANTUS [Suspect]
     Dosage: DOSE: 12-14
     Route: 058
     Dates: start: 20071221
  2. OPTICLIK (INSULIN INJECTION PEN) [Suspect]
     Dates: start: 20071221
  3. HUMALOG [Concomitant]
     Dosage: DOSE: UNK

REACTIONS (2)
  - JOINT ARTHROPLASTY [None]
  - TOE OPERATION [None]
